FAERS Safety Report 15080013 (Version 2)
Quarter: 2018Q3

REPORT INFORMATION
  Report Type: Spontaneous
  Country: US (occurrence: US)
  Receive Date: 20180627
  Receipt Date: 20180720
  Transmission Date: 20181010
  Serious: Yes (Hospitalization)
  Sender: FDA-Public Use
  Company Number: US-BEH-2018092027

PATIENT
  Age: 69 Year
  Sex: Female
  Weight: 63.39 kg

DRUGS (27)
  1. HUMALOG [Concomitant]
     Active Substance: INSULIN LISPRO
  2. XANAX [Concomitant]
     Active Substance: ALPRAZOLAM
  3. LANTUS [Concomitant]
     Active Substance: INSULIN GLARGINE
  4. OMEPRAZOLE. [Concomitant]
     Active Substance: OMEPRAZOLE
  5. SODIUM CHLORIDE. [Concomitant]
     Active Substance: SODIUM CHLORIDE
  6. SYMBICORT [Concomitant]
     Active Substance: BUDESONIDE\FORMOTEROL FUMARATE DIHYDRATE
  7. ASPIRIN (E.C.) [Concomitant]
     Active Substance: ASPIRIN
  8. THEOPHYLLINE [Concomitant]
     Active Substance: THEOPHYLLINE ANHYDROUS
  9. EPINEPHRINE. [Concomitant]
     Active Substance: EPINEPHRINE
  10. PROBIOTIC                          /06395501/ [Concomitant]
     Active Substance: BIFIDOBACTERIUM ANIMALIS LACTIS
  11. METFORMIN [Concomitant]
     Active Substance: METFORMIN HYDROCHLORIDE
  12. ACETAMINOPHEN. [Concomitant]
     Active Substance: ACETAMINOPHEN
  13. HIZENTRA [Suspect]
     Active Substance: HUMAN IMMUNOGLOBULIN G
     Indication: IMMUNODEFICIENCY COMMON VARIABLE
     Dosage: 12 G, QW
     Route: 058
     Dates: start: 20160606
  14. SINGULAIR [Concomitant]
     Active Substance: MONTELUKAST SODIUM
  15. LIDOCAINE. [Concomitant]
     Active Substance: LIDOCAINE
  16. HIZENTRA [Suspect]
     Active Substance: HUMAN IMMUNOGLOBULIN G
     Dosage: UNK
     Route: 058
  17. ESCITALOPRAM [Concomitant]
     Active Substance: ESCITALOPRAM OXALATE
  18. VENTOLIN [Concomitant]
     Active Substance: ALBUTEROL SULFATE
  19. FLUTICASONE. [Concomitant]
     Active Substance: FLUTICASONE
  20. PRILOSEC [Concomitant]
     Active Substance: OMEPRAZOLE MAGNESIUM
  21. BUDESONIDE. [Concomitant]
     Active Substance: BUDESONIDE
  22. BENICAR [Concomitant]
     Active Substance: OLMESARTAN MEDOXOMIL
  23. OXYGEN. [Concomitant]
     Active Substance: OXYGEN
  24. HIZENTRA [Suspect]
     Active Substance: HUMAN IMMUNOGLOBULIN G
     Dosage: UNK
     Route: 058
  25. MUCINEX [Concomitant]
     Active Substance: GUAIFENESIN
  26. ALPRAZOLAM. [Concomitant]
     Active Substance: ALPRAZOLAM
  27. DIPHENHYDRAMINE. [Concomitant]
     Active Substance: DIPHENHYDRAMINE

REACTIONS (1)
  - Pneumonitis [Recovered/Resolved]

NARRATIVE: CASE EVENT DATE: 20180606
